FAERS Safety Report 8991387 (Version 1)
Quarter: 2012Q4

REPORT INFORMATION
  Report Type: 
  Country: US (occurrence: US)
  Receive Date: 20121229
  Receipt Date: 20121229
  Transmission Date: 20130627
  Serious: No
  Sender: FDA-Public Use
  Company Number: US-009507513-1212USA010737

PATIENT
  Age: 55 Year
  Sex: Female
  Weight: 55.33 kg

DRUGS (4)
  1. PEGINTRON [Suspect]
     Dosage: 80 Microgram, qw, 80 micrograms/0.5 ml
     Route: 058
  2. TEMAZEPAM [Concomitant]
     Route: 048
  3. DIAZEPAM [Concomitant]
     Route: 048
  4. FOSAMAX [Concomitant]
     Route: 048

REACTIONS (5)
  - Weight decreased [Unknown]
  - Nausea [Unknown]
  - Chills [Unknown]
  - Myalgia [Unknown]
  - Decreased appetite [Unknown]
